FAERS Safety Report 17030824 (Version 1)
Quarter: 2019Q4

REPORT INFORMATION
  Report Type: Spontaneous
  Country: DE (occurrence: DE)
  Receive Date: 20191114
  Receipt Date: 20191114
  Transmission Date: 20200122
  Serious: Yes (Hospitalization, Other)
  Sender: FDA-Public Use
  Company Number: DE-DEXPHARM-20190980

PATIENT
  Age: 72 Year
  Sex: Female

DRUGS (7)
  1. L-THYROXIN 50 ?G [Concomitant]
     Indication: HYPOTHYROIDISM
  2. CHLORHEXAMED 0.2% [Suspect]
     Active Substance: CHLORHEXIDINE GLUCONATE
     Indication: PERIODONTITIS
     Dosage: 2 X DAY
     Route: 049
     Dates: start: 20190912
  3. SIMVA 40 MG [Concomitant]
     Indication: HYPERCHOLESTEROLAEMIA
  4. ASS 100 [Concomitant]
     Active Substance: ASPIRIN
     Indication: VASCULAR GRAFT
  5. BISOPROLOL 2.5 MG [Concomitant]
     Active Substance: BISOPROLOL
     Indication: VASCULAR GRAFT
  6. AMLODIPIN 5 MG [Concomitant]
     Indication: HYPERTENSION
  7. RAMILICH 5 MG [Concomitant]
     Indication: HYPERTENSION

REACTIONS (2)
  - Circulatory collapse [Recovered/Resolved]
  - Face oedema [Recovered/Resolved]

NARRATIVE: CASE EVENT DATE: 20190914
